FAERS Safety Report 8969114 (Version 1)
Quarter: 2012Q4

REPORT INFORMATION
  Report Type: 
  Country: US (occurrence: US)
  Receive Date: 20121217
  Receipt Date: 20121217
  Transmission Date: 20130627
  Serious: Yes (Other)
  Sender: FDA-Public Use
  Company Number: US-PFIZER INC-2012318586

PATIENT
  Age: 50 Year
  Sex: Female
  Weight: 63.49 kg

DRUGS (6)
  1. NEURONTIN [Suspect]
     Indication: NERVE PAIN
     Dosage: 100 mg, 1x/day
     Route: 048
     Dates: start: 2006
  2. NEURONTIN [Suspect]
     Dosage: 300 mg, 2x/day
     Route: 048
     Dates: end: 201203
  3. NEURONTIN [Suspect]
     Dosage: 300 mg, 3x/day
     Route: 048
     Dates: start: 201203
  4. TRAMADOL [Concomitant]
     Dosage: 120 mg, 1x/day
  5. ASPIRIN [Concomitant]
     Dosage: 81 mg, 2x/day
  6. AMLODIPINE [Concomitant]
     Dosage: 5 mg, 1x/day

REACTIONS (7)
  - Multiple sclerosis [Not Recovered/Not Resolved]
  - Myocardial infarction [Unknown]
  - Chest pain [Not Recovered/Not Resolved]
  - Liver disorder [Unknown]
  - Pancreatic disorder [Unknown]
  - Blood potassium decreased [Unknown]
  - Renal impairment [Unknown]
